FAERS Safety Report 18362858 (Version 1)
Quarter: 2020Q4

REPORT INFORMATION
  Report Type: Spontaneous
  Country: NL (occurrence: NL)
  Receive Date: 20201008
  Receipt Date: 20201008
  Transmission Date: 20210114
  Serious: Yes (Death, Other)
  Sender: FDA-Public Use
  Company Number: NVSC2020NL271268

PATIENT
  Age: 72 Year
  Sex: Male

DRUGS (2)
  1. PITAVASTATIN. [Suspect]
     Active Substance: PITAVASTATIN CALCIUM
     Indication: DYSLIPIDAEMIA
     Dosage: UNK
     Route: 065
  2. ATORVASTATIN [Suspect]
     Active Substance: ATORVASTATIN
     Indication: DYSLIPIDAEMIA
     Dosage: UNK
     Route: 065

REACTIONS (8)
  - Decreased appetite [Fatal]
  - Muscular weakness [Fatal]
  - Asthenia [Fatal]
  - Immune-mediated myositis [Fatal]
  - Myalgia [Fatal]
  - Pneumonia bacterial [Unknown]
  - Gait disturbance [Fatal]
  - Weight decreased [Fatal]
